FAERS Safety Report 16763235 (Version 2)
Quarter: 2019Q4

REPORT INFORMATION
  Report Type: Spontaneous
  Country: JP (occurrence: JP)
  Receive Date: 20190902
  Receipt Date: 20191018
  Transmission Date: 20200122
  Serious: Yes (Hospitalization, Other)
  Sender: FDA-Public Use
  Company Number: JP-TEVA-2019-JP-1102842

PATIENT
  Age: 64 Year
  Sex: Male
  Weight: 61.8 kg

DRUGS (8)
  1. BI SIFROL [Concomitant]
     Active Substance: PRAMIPEXOLE
     Dosage: 2 DOSAGE FORMS DAILY;
     Dates: start: 20190727
  2. COMTAN [Concomitant]
     Active Substance: ENTACAPONE
     Dates: start: 20190516
  3. NEUPRO [Concomitant]
     Active Substance: ROTIGOTINE
     Dosage: TAPE (INCLUDING POULTICE)
     Dates: start: 20190328
  4. BI SIFROL [Concomitant]
     Active Substance: PRAMIPEXOLE
     Dosage: 1 DOSAGE FORMS DAILY;
     Dates: end: 20190626
  5. AZILECT [Suspect]
     Active Substance: RASAGILINE MESYLATE
     Indication: PARKINSON^S DISEASE
     Dosage: 1 MILLIGRAM DAILY;
     Route: 048
     Dates: start: 20190627, end: 20190808
  6. SYMMETREL [Concomitant]
     Active Substance: AMANTADINE HYDROCHLORIDE
     Dates: start: 20150430
  7. CARCOPA [Concomitant]
     Active Substance: CARBIDOPA\LEVODOPA
     Dates: start: 20190613
  8. MIRAPEX [Concomitant]
     Active Substance: PRAMIPEXOLE DIHYDROCHLORIDE
     Dates: start: 20160818

REACTIONS (2)
  - Product prescribing error [Unknown]
  - Neuroleptic malignant syndrome [Recovered/Resolved]

NARRATIVE: CASE EVENT DATE: 20190627
